FAERS Safety Report 23184683 (Version 4)
Quarter: 2024Q1

REPORT INFORMATION
  Report Type: Spontaneous
  Country: CA (occurrence: CA)
  Receive Date: 20231115
  Receipt Date: 20240104
  Transmission Date: 20240410
  Serious: Yes (Hospitalization)
  Sender: FDA-Public Use
  Company Number: CA-CELLTRION INC.-2023CA022011

PATIENT

DRUGS (2)
  1. INFLECTRA [Suspect]
     Active Substance: INFLIXIMAB-DYYB
     Indication: Crohn^s disease
     Dosage: 5 MG/KG 2 DOSES INDUCTION WEEK 0 AND WEEK 4 THEN Q 8 WEEK
     Route: 042
     Dates: start: 20231027
  2. ENTOCORT [Concomitant]
     Active Substance: BUDESONIDE
     Dosage: UNK

REACTIONS (6)
  - Pain in extremity [Recovered/Resolved]
  - Arthralgia [Recovered/Resolved]
  - Abdominal pain upper [Recovered/Resolved]
  - Arthritis [Recovered/Resolved]
  - Drug specific antibody present [Unknown]
  - Off label use [Unknown]

NARRATIVE: CASE EVENT DATE: 20230101
